FAERS Safety Report 22377215 (Version 2)
Quarter: 2023Q2

REPORT INFORMATION
  Report Type: Spontaneous
  Country: BR (occurrence: None)
  Receive Date: 20230529
  Receipt Date: 20230601
  Transmission Date: 20230721
  Serious: Yes (Other)
  Sender: FDA-Public Use
  Company Number: BR-ROCHE-3356662

PATIENT
  Age: 25 Year
  Sex: Male

DRUGS (4)
  1. FLUNITRAZEPAM [Suspect]
     Active Substance: FLUNITRAZEPAM
     Indication: Insomnia
     Dosage: HE HAS BEEN TAKING FLUNITRAZEPAM (ROHYPNOL) FOR APPROXIMATELY FOUR YEARS
     Route: 048
  2. FLUNITRAZEPAM [Suspect]
     Active Substance: FLUNITRAZEPAM
     Dosage: THERAPY START DATE: 05/MAY/2023
     Route: 048
  3. CLONAZEPAM [Suspect]
     Active Substance: CLONAZEPAM
     Indication: Insomnia
     Dosage: ON 13/MAY/2023 AND 14/MAY/2023 HE TOOK 2MG OF CLONAZEPAM ALONG WITH ROHYPNOL
     Route: 065
  4. DIPYRONE [Suspect]
     Active Substance: DIPYRONE
     Indication: Insomnia
     Route: 065

REACTIONS (8)
  - Drug ineffective [Unknown]
  - Heart rate increased [Recovered/Resolved]
  - Skin discolouration [Not Recovered/Not Resolved]
  - Suspected product quality issue [Unknown]
  - Drug interaction [Unknown]
  - Headache [Unknown]
  - Nervousness [Unknown]
  - Off label use [Unknown]

NARRATIVE: CASE EVENT DATE: 20230501
